FAERS Safety Report 9785216 (Version 1)
Quarter: 2013Q4

REPORT INFORMATION
  Report Type: Spontaneous
  Country: US (occurrence: None)
  Receive Date: 20131224
  Receipt Date: 20131224
  Transmission Date: 20140711
  Serious: Yes (Other)
  Sender: FDA-Public Use
  Company Number: 13-05227

PATIENT
  Age: 65 Year
  Sex: Male
  Weight: 73.48 kg

DRUGS (1)
  1. ALBUTEROL SULFATE [Suspect]
     Indication: BRONCHITIS CHRONIC
     Dosage: UNKNOWN 054
     Dates: start: 201310

REACTIONS (7)
  - Dyspnoea [None]
  - Activities of daily living impaired [None]
  - Gait disturbance [None]
  - Haemoptysis [None]
  - Lung disorder [None]
  - Pain [None]
  - Product quality issue [None]
